FAERS Safety Report 19689453 (Version 1)
Quarter: 2021Q3

REPORT INFORMATION
  Report Type: Spontaneous
  Country: GB (occurrence: GB)
  Receive Date: 20210812
  Receipt Date: 20210812
  Transmission Date: 20211014
  Serious: Yes (Other)
  Sender: FDA-Public Use
  Company Number: GB-TEVA-2021-GB-1939915

PATIENT
  Age: 67 Year
  Sex: Female
  Weight: 85 kg

DRUGS (1)
  1. LEVOTHYROXINE. [Suspect]
     Active Substance: LEVOTHYROXINE
     Indication: THYROIDECTOMY
     Dosage: 125MG
     Route: 065
     Dates: start: 20210701, end: 20210801

REACTIONS (6)
  - Dysgeusia [Recovering/Resolving]
  - Somnolence [Recovering/Resolving]
  - Communication disorder [Unknown]
  - Reaction to excipient [Unknown]
  - Feeling abnormal [Recovering/Resolving]
  - Coordination abnormal [Recovering/Resolving]

NARRATIVE: CASE EVENT DATE: 20210714
